FAERS Safety Report 5927194-0 (Version None)
Quarter: 2008Q4

REPORT INFORMATION
  Report Type: 
  Country: None (occurrence: None)
  Receive Date: 20081022
  Receipt Date: 20081015
  Transmission Date: 20090506
  Serious: Yes (Death)
  Sender: FDA-Public Use
  Company Number: US-GILEAD-2008-0018568

PATIENT
  Sex: Male
  Weight: 69.462 kg

DRUGS (5)
  1. LETAIRIS [Suspect]
     Indication: PULMONARY ARTERIAL HYPERTENSION
     Route: 048
     Dates: start: 20080422
  2. REVATIO [Concomitant]
     Route: 048
  3. PREDNISONE [Concomitant]
     Route: 048
  4. GEMFIBROZIL [Concomitant]
     Route: 048
  5. DOXYCYCLINE [Concomitant]
     Route: 048

REACTIONS (1)
  - DEATH [None]
